FAERS Safety Report 8820458 (Version 5)
Quarter: 2013Q1

REPORT INFORMATION
  Report Type: Spontaneous
  Country: US (occurrence: US)
  Receive Date: 20121002
  Receipt Date: 20130319
  Transmission Date: 20140127
  Serious: Yes (Hospitalization, Other)
  Sender: FDA-Public Use
  Company Number: US-009507513-1205USA00344

PATIENT
  Sex: Female
  Weight: 71.2 kg

DRUGS (8)
  1. FOSAMAX [Suspect]
     Indication: OSTEOPOROSIS
     Dosage: 10 MG, UNK
     Route: 048
     Dates: start: 19990723, end: 20000723
  2. FOSAMAX [Suspect]
     Dosage: 70 MG, QW
     Route: 048
     Dates: start: 200602, end: 200801
  3. FOSAMAX [Suspect]
     Dosage: 40 MG, QD
     Route: 048
  4. ALENDRONATE SODIUM [Suspect]
     Indication: OSTEOPOROSIS
     Dosage: 70 MG, QW
     Route: 048
     Dates: start: 200802, end: 201107
  5. FOSAMAX [Suspect]
     Dosage: 70 MG, QW
     Route: 048
  6. PREVACID [Concomitant]
     Indication: GASTROOESOPHAGEAL REFLUX DISEASE
     Dosage: UNK
  7. ASPIRIN [Concomitant]
     Indication: CEREBROVASCULAR ACCIDENT PROPHYLAXIS
  8. FLUOXETINE [Concomitant]
     Indication: DEPRESSION

REACTIONS (23)
  - Femur fracture [Unknown]
  - Intramedullary rod insertion [Unknown]
  - Hip fracture [Unknown]
  - Intramedullary rod insertion [Unknown]
  - Wrist fracture [Unknown]
  - Fall [Unknown]
  - Fall [Unknown]
  - Wrist surgery [Unknown]
  - Pancreatitis [Unknown]
  - Breast cancer [Unknown]
  - Anaemia [Unknown]
  - Mastectomy [Unknown]
  - Catheterisation cardiac [Unknown]
  - Neuropathy peripheral [Unknown]
  - Hypertension [Unknown]
  - Bladder disorder [Unknown]
  - Osteopenia [Unknown]
  - Infection [Unknown]
  - Balance disorder [Unknown]
  - Contusion [Unknown]
  - Coronary artery disease [Unknown]
  - Pubis fracture [Unknown]
  - Osteoarthritis [Unknown]
